FAERS Safety Report 20393113 (Version 1)
Quarter: 2022Q1

REPORT INFORMATION
  Report Type: Spontaneous
  Country: CA (occurrence: CA)
  Receive Date: 20220128
  Receipt Date: 20220128
  Transmission Date: 20220423
  Serious: Yes (Hospitalization)
  Sender: FDA-Public Use
  Company Number: CA-TEVA-2022-CA-2002019

PATIENT
  Age: 78 Year
  Sex: Male
  Weight: 64 kg

DRUGS (7)
  1. VENLAFAXINE [Suspect]
     Active Substance: VENLAFAXINE HYDROCHLORIDE
     Indication: Anxiety
     Dosage: 37.5 MILLIGRAM DAILY;
     Route: 048
  2. INDAPAMIDE HEMIHYDRATE\PERINDOPRIL ERBUMINE [Suspect]
     Active Substance: INDAPAMIDE HEMIHYDRATE\PERINDOPRIL ERBUMINE
     Indication: Hypertension
     Dosage: 1 DOSAGE FORMS DAILY;
     Route: 048
  3. ASPIRIN [Concomitant]
     Active Substance: ASPIRIN
  4. PERINDOPRIL [Concomitant]
     Active Substance: PERINDOPRIL
  5. LORAZEPAM [Concomitant]
     Active Substance: LORAZEPAM
     Route: 065
  6. SYMBICORT [Concomitant]
     Active Substance: BUDESONIDE\FORMOTEROL FUMARATE DIHYDRATE
  7. VITAMIN B12 [Concomitant]
     Active Substance: CYANOCOBALAMIN

REACTIONS (9)
  - Blood potassium decreased [Recovering/Resolving]
  - Decreased appetite [Recovering/Resolving]
  - Depressed mood [Recovering/Resolving]
  - Dyspnoea [Recovering/Resolving]
  - General physical health deterioration [Recovering/Resolving]
  - Blood potassium decreased [Recovering/Resolving]
  - Hypophagia [Recovering/Resolving]
  - Inappropriate antidiuretic hormone secretion [Recovering/Resolving]
  - Negative thoughts [Recovering/Resolving]
